FAERS Safety Report 22316357 (Version 2)
Quarter: 2023Q2

REPORT INFORMATION
  Report Type: Spontaneous
  Country: CZ (occurrence: CZ)
  Receive Date: 20230513
  Receipt Date: 20230522
  Transmission Date: 20230721
  Serious: Yes (Hospitalization, Other)
  Sender: FDA-Public Use
  Company Number: None

PATIENT
  Age: 66 Year
  Sex: Female

DRUGS (3)
  1. LEQVIO [Suspect]
     Active Substance: INCLISIRAN SODIUM
     Indication: Product used for unknown indication
     Dosage: 284 MG, Q3MO (27.9.2022 DOSE 1, 27.12.2022 DOSE 2)
     Route: 065
     Dates: start: 20220927, end: 20221227
  2. LEQVIO [Suspect]
     Active Substance: INCLISIRAN SODIUM
     Dosage: 284 MG
     Route: 065
     Dates: start: 20221227, end: 20221227
  3. TELMISARTAN [Concomitant]
     Active Substance: TELMISARTAN
     Indication: Hypertension
     Dosage: 80 MG
     Route: 065

REACTIONS (1)
  - Pancreatitis necrotising [Unknown]

NARRATIVE: CASE EVENT DATE: 20230116
